FAERS Safety Report 8393838-X (Version None)
Quarter: 2012Q2

REPORT INFORMATION
  Report Type: 
  Country: None (occurrence: None)
  Receive Date: 20120530
  Receipt Date: 20120524
  Transmission Date: 20120825
  Serious: No
  Sender: FDA-Public Use
  Company Number: US-PFIZER INC-2012126384

PATIENT
  Sex: Female
  Weight: 79 kg

DRUGS (3)
  1. FLECTOR [Suspect]
     Indication: BACK PAIN
     Dosage: UNK
     Route: 061
     Dates: start: 20120517, end: 20120524
  2. FISH OIL [Concomitant]
     Dosage: UNK
  3. FLECTOR [Suspect]
     Indication: ARTHRALGIA

REACTIONS (1)
  - DRUG INEFFECTIVE [None]
